FAERS Safety Report 9354386 (Version 2)
Quarter: 2013Q2

REPORT INFORMATION
  Report Type: Report from Study
  Country: DE (occurrence: JP)
  Receive Date: 20130618
  Receipt Date: 20130624
  Transmission Date: 20140414
  Serious: Yes (Hospitalization)
  Sender: FDA-Public Use
  Company Number: JP-FRI-1000045882

PATIENT
  Sex: Male

DRUGS (8)
  1. MEMANTINE [Suspect]
     Indication: DEMENTIA ALZHEIMER^S TYPE
     Dosage: 5MG
     Route: 048
     Dates: start: 20120228, end: 20120305
  2. MEMANTINE [Suspect]
     Indication: DEMENTIA ALZHEIMER^S TYPE
     Dosage: 10MG
     Route: 048
     Dates: start: 20120306, end: 20120312
  3. MEMANTINE [Suspect]
     Indication: DEMENTIA ALZHEIMER^S TYPE
     Dosage: 15MG
     Route: 048
     Dates: start: 20120313, end: 20120326
  4. MEMANTINE [Suspect]
     Indication: DEMENTIA ALZHEIMER^S TYPE
     Dosage: 20MG
     Route: 048
     Dates: start: 20120327
  5. YOKUKAN-SAN [Concomitant]
     Route: 048
  6. RISPERDAL [Concomitant]
     Route: 048
     Dates: end: 20121119
  7. ARICEPT [Concomitant]
     Dosage: 3MG
     Route: 048
  8. CRAVIT INJECTION [Concomitant]
     Dosage: 500 MG
     Route: 050
     Dates: start: 20130309, end: 20130315

REACTIONS (1)
  - Prostatitis [Recovering/Resolving]
